FAERS Safety Report 5897042-6 (Version None)
Quarter: 2008Q3

REPORT INFORMATION
  Report Type: 
  Country: None (occurrence: None)
  Receive Date: 20080924
  Receipt Date: 20080904
  Transmission Date: 20090109
  Serious: Yes (Other)
  Sender: FDA-Public Use
  Company Number: IE-MERCK-0809GBR00082

PATIENT
  Sex: Male

DRUGS (2)
  1. SINGULAIR [Suspect]
     Route: 048
     Dates: start: 20060101
  2. ISONIAZID [Concomitant]
     Route: 065

REACTIONS (2)
  - ABNORMAL DREAMS [None]
  - SUICIDE ATTEMPT [None]
